FAERS Safety Report 9994795 (Version 1)
Quarter: 2014Q1

REPORT INFORMATION
  Report Type: Spontaneous
  Country: CO (occurrence: CO)
  Receive Date: 20140311
  Receipt Date: 20140311
  Transmission Date: 20141002
  Serious: Yes (Death)
  Sender: FDA-Public Use
  Company Number: CO-JNJFOC-20140300412

PATIENT
  Age: 93 Year
  Sex: Male

DRUGS (1)
  1. ZYTIGA [Suspect]
     Indication: PROSTATE CANCER
     Route: 048
     Dates: start: 201311, end: 20140221

REACTIONS (5)
  - Respiratory disorder [Fatal]
  - Bone pain [Unknown]
  - Headache [Unknown]
  - Asthenia [Unknown]
  - Drug dose omission [Unknown]
